FAERS Safety Report 9181541 (Version 1)
Quarter: 2013Q1

REPORT INFORMATION
  Report Type: Spontaneous
  Country: JP (occurrence: JP)
  Receive Date: 20130322
  Receipt Date: 20130322
  Transmission Date: 20140127
  Serious: Yes (Other)
  Sender: FDA-Public Use
  Company Number: JP-ELI_LILLY_AND_COMPANY-JP201107001142

PATIENT
  Age: 75 Year
  Sex: Female

DRUGS (1)
  1. FORTEO [Suspect]
     Dosage: UNK
     Route: 058

REACTIONS (7)
  - Foot fracture [Unknown]
  - Chromaturia [Unknown]
  - Blood calcium increased [Unknown]
  - Hypoacusis [Unknown]
  - Visual acuity reduced [Unknown]
  - Pain in extremity [Unknown]
  - Drug ineffective [Unknown]
